FAERS Safety Report 9142811 (Version 1)
Quarter: 2013Q1

REPORT INFORMATION
  Report Type: Spontaneous
  Country: JP (occurrence: JP)
  Receive Date: 20130306
  Receipt Date: 20130306
  Transmission Date: 20140127
  Serious: Yes (Other)
  Sender: FDA-Public Use
  Company Number: JP-OTSUKA-02100-JPN-99-0147

PATIENT
  Sex: 0

DRUGS (2)
  1. PLETAAL [Suspect]
     Dosage: 100 MG, BID
     Route: 048
  2. ASPIRIN [Concomitant]

REACTIONS (1)
  - Thrombosis [Unknown]
